FAERS Safety Report 5112465-0 (Version None)
Quarter: 2006Q3

REPORT INFORMATION
  Report Type: 
  Country: None (occurrence: None)
  Receive Date: 20060919
  Receipt Date: 20060907
  Transmission Date: 20061208
  Serious: Yes (Other)
  Sender: FDA-Public Use
  Company Number: 2006110180

PATIENT
  Sex: Male
  Weight: 2.2 kg

DRUGS (2)
  1. MEDROXYPROGESTERONE ACETATE [Suspect]
     Indication: CONTRACEPTION
     Dosage: (SINGLE INJECTION), INTRAMUSCULAR
     Route: 030
     Dates: start: 20000301, end: 20000301
  2. LITHIUM (LITHIUM) [Concomitant]

REACTIONS (2)
  - DRUG EXPOSURE DURING PREGNANCY [None]
  - SMALL FOR DATES BABY [None]
